FAERS Safety Report 14375669 (Version 1)
Quarter: 2018Q1

REPORT INFORMATION
  Report Type: Spontaneous
  Country: US (occurrence: US)
  Receive Date: 20180110
  Receipt Date: 20180110
  Transmission Date: 20180509
  Serious: Yes (Other)
  Sender: FDA-Public Use
  Company Number: None

PATIENT
  Age: 62 Year
  Sex: Female
  Weight: 58.97 kg

DRUGS (8)
  1. PROLIA [Suspect]
     Active Substance: DENOSUMAB
     Indication: OSTEOPOROSIS
     Dosage: EVERY 6 MONTHS INJECTION SUBQ
     Route: 058
     Dates: start: 20171013
  2. PROTONIX [Concomitant]
     Active Substance: PANTOPRAZOLE SODIUM
  3. VITA D [Concomitant]
  4. EXEMESTAINE [Concomitant]
  5. CALCIUM [Concomitant]
     Active Substance: CALCIUM
  6. METATONEN [Concomitant]
  7. MULTIVITAMINS [Concomitant]
     Active Substance: VITAMINS
  8. XANAX [Concomitant]
     Active Substance: ALPRAZOLAM

REACTIONS (4)
  - Joint range of motion decreased [None]
  - Arthralgia [None]
  - Paraesthesia [None]
  - Myalgia [None]

NARRATIVE: CASE EVENT DATE: 20171018
